FAERS Safety Report 15968684 (Version 1)
Quarter: 2019Q1

REPORT INFORMATION
  Report Type: Spontaneous
  Country: ES (occurrence: ES)
  Receive Date: 20190215
  Receipt Date: 20190215
  Transmission Date: 20190418
  Serious: Yes (Hospitalization, Other)
  Sender: FDA-Public Use
  Company Number: ES-BAUSCH-BL-2019-004187

PATIENT
  Age: 31 Year
  Sex: Female

DRUGS (5)
  1. DIAZEPAM. [Suspect]
     Active Substance: DIAZEPAM
     Indication: MIXED ANXIETY AND DEPRESSIVE DISORDER
     Route: 065
  2. TIZANIDINE. [Interacting]
     Active Substance: TIZANIDINE
     Indication: MUSCLE CONTRACTURE
     Route: 065
  3. SERTRALINE [Interacting]
     Active Substance: SERTRALINE HYDROCHLORIDE
     Indication: MIXED ANXIETY AND DEPRESSIVE DISORDER
     Route: 065
  4. TIZANIDINE. [Interacting]
     Active Substance: TIZANIDINE
     Dosage: 6 MG DAILY
     Route: 065
     Dates: start: 201605
  5. DIAZEPAM. [Interacting]
     Active Substance: DIAZEPAM
     Dosage: DOSE INCREASED
     Route: 065

REACTIONS (14)
  - Tachypnoea [Recovering/Resolving]
  - Sedation [Recovering/Resolving]
  - Drug withdrawal syndrome [Recovering/Resolving]
  - Intentional product misuse [Recovering/Resolving]
  - Heart rate increased [Recovered/Resolved]
  - Sinus tachycardia [Recovering/Resolving]
  - Hypertension [Recovering/Resolving]
  - Vomiting [Recovering/Resolving]
  - Agitation [Recovered/Resolved]
  - Nausea [Recovering/Resolving]
  - Temperature regulation disorder [Recovering/Resolving]
  - Hyperthermia [Recovering/Resolving]
  - Tremor [Recovered/Resolved]
  - Drug interaction [Recovering/Resolving]
